FAERS Safety Report 14197827 (Version 1)
Quarter: 2017Q4

REPORT INFORMATION
  Report Type: Report from Study
  Country: US (occurrence: US)
  Receive Date: 20171117
  Receipt Date: 20171117
  Transmission Date: 20180321
  Serious: No
  Sender: FDA-Public Use
  Company Number: PHEH2017US037192

PATIENT
  Age: 12 Year
  Sex: Male

DRUGS (1)
  1. OMNITROPE [Suspect]
     Active Substance: SOMATROPIN
     Indication: PRODUCT USED FOR UNKNOWN INDICATION
     Dosage: 2.4 MG/KG, QW
     Route: 058

REACTIONS (3)
  - Incorrect dose administered by device [Unknown]
  - Device breakage [Unknown]
  - Injection site pain [Unknown]

NARRATIVE: CASE EVENT DATE: 20171113
